FAERS Safety Report 9345429 (Version 2)
Quarter: 2013Q3

REPORT INFORMATION
  Report Type: Spontaneous
  Country: JP (occurrence: JP)
  Receive Date: 20130613
  Receipt Date: 20130701
  Transmission Date: 20140515
  Serious: Yes (Death)
  Sender: FDA-Public Use
  Company Number: JP-B.I. PHARMACEUTICALS,INC./RIDGEFIELD-2013-BI-16691NB

PATIENT
  Age: 78 Year
  Sex: Male

DRUGS (2)
  1. MOBIC [Suspect]
     Dosage: 10 MG
     Route: 048
     Dates: start: 201206, end: 201206
  2. LAXOBERON [Suspect]
     Route: 065

REACTIONS (1)
  - Toxic epidermal necrolysis [Fatal]
